FAERS Safety Report 6099419-5 (Version None)
Quarter: 2009Q1

REPORT INFORMATION
  Report Type: 
  Country: None (occurrence: None)
  Receive Date: 20090303
  Receipt Date: 20090220
  Transmission Date: 20090719
  Serious: Yes (Hospitalization)
  Sender: FDA-Public Use
  Company Number: ZA-NOVOPROD-284411

PATIENT
  Sex: Male
  Weight: 71.3 kg

DRUGS (1)
  1. MIXTARD 30 NOVOLET HM(GE) 3.0 ML [Suspect]
     Indication: INSULIN-REQUIRING TYPE 2 DIABETES MELLITUS
     Dosage: UNK, UNK
     Route: 058

REACTIONS (1)
  - TICK-BORNE FEVER [None]
